FAERS Safety Report 6292824-3 (Version None)
Quarter: 2009Q3

REPORT INFORMATION
  Report Type: 
  Country: None (occurrence: None)
  Receive Date: 20090729
  Receipt Date: 20090625
  Transmission Date: 20100115
  Serious: Yes (Life-Threatening, Hospitalization)
  Sender: FDA-Public Use
  Company Number: DE-1170063

PATIENT
  Age: 71 Year
  Sex: Male

DRUGS (3)
  1. FLUORESCITE [Suspect]
     Indication: ANGIOGRAM RETINA
     Dosage: 1 DF QD INTRAVENOUS BOLUS
     Route: 040
     Dates: start: 20090518, end: 20090518
  2. ACETYLSALICYLIC ACID SRT [Concomitant]
  3. SALBUHEXAL (SALBUTAMOL SULFATE) [Concomitant]

REACTIONS (6)
  - ANAPHYLACTIC SHOCK [None]
  - CHEST PAIN [None]
  - DYSPNOEA [None]
  - LOSS OF CONSCIOUSNESS [None]
  - NEUROLOGICAL EXAMINATION ABNORMAL [None]
  - SKELETAL INJURY [None]
